FAERS Safety Report 5893206-6 (Version None)
Quarter: 2008Q3

REPORT INFORMATION
  Report Type: 
  Country: None (occurrence: None)
  Receive Date: 20080923
  Receipt Date: 20070804
  Transmission Date: 20090109
  Serious: No
  Sender: FDA-Public Use
  Company Number: US-ASTRAZENECA-2007UW18977

PATIENT
  Sex: Male

DRUGS (1)
  1. SEROQUEL [Suspect]
     Dates: start: 20050101

REACTIONS (4)
  - HANGOVER [None]
  - NAUSEA [None]
  - VOMITING [None]
  - WITHDRAWAL SYNDROME [None]
